FAERS Safety Report 6282707-7 (Version None)
Quarter: 2009Q3

REPORT INFORMATION
  Report Type: 
  Country: None (occurrence: None)
  Receive Date: 20090724
  Receipt Date: 20090713
  Transmission Date: 20100115
  Serious: No
  Sender: FDA-Public Use
  Company Number: US-ELI_LILLY_AND_COMPANY-US200602000234

PATIENT
  Sex: Female
  Weight: 109.75 kg

DRUGS (22)
  1. ZYPREXA [Suspect]
     Indication: DEPRESSION
     Dosage: 10 MG, UNK
     Route: 048
     Dates: start: 20000306, end: 20030411
  2. ACETAMINOPHEN AND HYDROCODONE BITARTRATE [Concomitant]
     Dosage: 1 D/F, UNK
     Route: 048
  3. BENZOTROPINE [Concomitant]
     Dosage: 0.5 MG, UNK
     Route: 048
  4. BENZOTROPINE [Concomitant]
     Dosage: 1 MG, UNK
     Route: 048
  5. BENZOTROPINE [Concomitant]
     Dosage: 2 MG, UNK
     Route: 048
  6. VENLAFAXINE HYDROCHLORIDE [Concomitant]
     Dosage: 75 MG, UNK
     Route: 048
  7. CLARITHROMYCIN [Concomitant]
     Dosage: 500 MG, UNK
     Route: 048
  8. GUAIFENEX [Concomitant]
     Dosage: 1 D/F, UNK
     Route: 048
  9. LORAZEPAM [Concomitant]
     Dosage: 0.5 MG, UNK
     Route: 048
  10. SULFAMETHOXAZOLE AND TRIMETHOPRIM [Concomitant]
     Dosage: 1 D/F, UNK
     Route: 048
  11. GUAIFENESIN W/PHENYLEPHR HCL/PHENYLPROPAN HCL [Concomitant]
     Dosage: 1 D/F, UNK
     Route: 048
  12. CEPHALEXIN [Concomitant]
     Dosage: 500 MG, UNK
     Route: 048
  13. ROFECOXIB [Concomitant]
     Dosage: 25 MG, UNK
     Route: 048
  14. ORLISTAT [Concomitant]
     Dosage: 120 MG, UNK
     Route: 048
  15. NAPROXEN [Concomitant]
     Dosage: 500 MG, UNK
     Route: 048
  16. PIROXICAM [Concomitant]
     Dosage: 200 MG, UNK
     Route: 048
  17. CORTICOSTEROIDS, DERMATOLOGICAL PREPARATIONS [Concomitant]
     Route: 061
  18. LEVOFLOXACIN [Concomitant]
     Dosage: 500 MG, UNK
     Route: 048
  19. TUSSIONEX                               /CAN/ [Concomitant]
     Dosage: 1 D/F, UNK
     Route: 048
  20. CLONAZEPAM [Concomitant]
     Dosage: 0.5 MG, UNK
     Route: 048
  21. GUAIFENESIN W/DEXTROMETHORPHAN [Concomitant]
  22. ERYTHROCINE [Concomitant]
     Dosage: 250 MG, UNK
     Route: 048

REACTIONS (7)
  - ANAEMIA [None]
  - HYPERTENSION [None]
  - MITRAL VALVE DISEASE MIXED [None]
  - OFF LABEL USE [None]
  - PALPITATIONS [None]
  - SINUS ARRHYTHMIA [None]
  - TYPE 2 DIABETES MELLITUS [None]
